FAERS Safety Report 18715592 (Version 1)
Quarter: 2021Q1

REPORT INFORMATION
  Report Type: Spontaneous
  Country: US (occurrence: US)
  Receive Date: 20210108
  Receipt Date: 20210108
  Transmission Date: 20210419
  Serious: Yes (Hospitalization, Other)
  Sender: FDA-Public Use
  Company Number: US-APOTEX-2021AP001013

PATIENT
  Age: 20 Year
  Sex: Male

DRUGS (1)
  1. OLANZAPINE. [Suspect]
     Active Substance: OLANZAPINE
     Indication: SCHIZOPHRENIFORM DISORDER
     Dosage: 15 MILLIGRAM, QD
     Route: 048

REACTIONS (5)
  - Metabolic syndrome [Unknown]
  - Blood triglycerides increased [Recovering/Resolving]
  - Diabetic ketoacidosis [Unknown]
  - Diabetes mellitus [Unknown]
  - Hypercholesterolaemia [Recovering/Resolving]
